FAERS Safety Report 4477993-X (Version None)
Quarter: 2004Q4

REPORT INFORMATION
  Report Type: 
  Country: None (occurrence: None)
  Receive Date: 20041018
  Receipt Date: 20041013
  Transmission Date: 20050328
  Serious: Yes (Disabling)
  Sender: FDA-Public Use
  Company Number: US-MERCK-0410USA02114

PATIENT
  Age: 81 Year
  Sex: Female

DRUGS (2)
  1. PRILOSEC [Concomitant]
     Route: 065
  2. VIOXX [Suspect]
     Indication: ARTHRITIS
     Route: 048
     Dates: start: 19990101, end: 20030101

REACTIONS (1)
  - GASTRITIS [None]
